FAERS Safety Report 12944640 (Version 1)
Quarter: 2016Q4

REPORT INFORMATION
  Report Type: Spontaneous
  Country: US (occurrence: US)
  Receive Date: 20161115
  Receipt Date: 20161115
  Transmission Date: 20170207
  Serious: Yes (Other)
  Sender: FDA-Public Use
  Company Number: US-ELI_LILLY_AND_COMPANY-US201607008578

PATIENT
  Sex: Female
  Weight: 87 kg

DRUGS (5)
  1. KLONOPIN [Concomitant]
     Active Substance: CLONAZEPAM
     Indication: PRODUCT USED FOR UNKNOWN INDICATION
     Dosage: 1 DF, BID
     Route: 065
  2. CHANTIX [Concomitant]
     Active Substance: VARENICLINE TARTRATE
     Dosage: 1 DF, BID
     Route: 065
  3. CYMBALTA [Suspect]
     Active Substance: DULOXETINE HYDROCHLORIDE
     Indication: PRODUCT USED FOR UNKNOWN INDICATION
     Dosage: UNK, UNKNOWN
     Route: 065
     Dates: start: 20110426
  4. CYMBALTA [Suspect]
     Active Substance: DULOXETINE HYDROCHLORIDE
     Dosage: 30 MG, 1-2 CAPSULES DAILY
     Route: 048
  5. CHANTIX [Concomitant]
     Active Substance: VARENICLINE TARTRATE
     Indication: PRODUCT USED FOR UNKNOWN INDICATION
     Dosage: 0.5 MG, QD

REACTIONS (19)
  - Agitation [Unknown]
  - Nausea [Unknown]
  - Irritability [Unknown]
  - Anxiety [Unknown]
  - Headache [Unknown]
  - Tremor [Unknown]
  - Confusional state [Unknown]
  - Lethargy [Unknown]
  - Hyperhidrosis [Unknown]
  - Dizziness [Unknown]
  - Fatigue [Unknown]
  - Vomiting [Unknown]
  - Seizure [Unknown]
  - Sensory disturbance [Unknown]
  - Dysphoria [Unknown]
  - Drug withdrawal syndrome [Unknown]
  - Affect lability [Unknown]
  - Vertigo [Unknown]
  - Paraesthesia [Unknown]
